FAERS Safety Report 4281204-8 (Version None)
Quarter: 2004Q1

REPORT INFORMATION
  Report Type: 
  Country: None (occurrence: None)
  Receive Date: 20040127
  Receipt Date: 20040113
  Transmission Date: 20041129
  Serious: Yes (Death, Life-Threatening, Other)
  Sender: FDA-Public Use
  Company Number: US-JNJFOC-20040102707

PATIENT
  Age: 73 Year
  Sex: Male
  Weight: 56.6996 kg

DRUGS (1)
  1. INFLIXIMAB (INFLXIMAB, RECOMBINANT) LYOPHILIZED POWDER [Suspect]
     Indication: CROHN'S DISEASE
     Dosage: 5 MG/KG, INTRAVENOUS
     Route: 042
     Dates: start: 20030902

REACTIONS (3)
  - ANAEMIA [None]
  - ASTHENIA [None]
  - PARAESTHESIA [None]
